FAERS Safety Report 5678134-3 (Version None)
Quarter: 2008Q1

REPORT INFORMATION
  Report Type: 
  Country: None (occurrence: None)
  Receive Date: 20080319
  Receipt Date: 20080307
  Transmission Date: 20080703
  Serious: Yes (Life-Threatening)
  Sender: FDA-Public Use
  Company Number: 2008-00773

PATIENT
  Age: 85 Year
  Sex: Female
  Weight: 64 kg

DRUGS (10)
  1. VELCADE [Suspect]
     Indication: MULTIPLE MYELOMA
     Dosage: 1.80 MG, INTRAVENOUS
     Route: 042
     Dates: start: 20071106, end: 20080222
  2. CNT0328(CNT0328) VIAL [Suspect]
     Indication: MULTIPLE MYELOMA
     Dosage: 420.00 MG, INTRAVENOUS
     Route: 042
     Dates: start: 20071106, end: 20080226
  3. PAMIDRONATE DISODIUM [Concomitant]
  4. BENARYL (SODIUM CITRATE, AMMONIUM CHLORIDE, MENTHOL, DIPHENHYDRAMINE H [Concomitant]
  5. CIPROFLOXACIN [Concomitant]
  6. CEFTRIAXONE [Concomitant]
  7. VANCOMYCIN [Concomitant]
  8. IMOVANE (ZOPICLONE) [Concomitant]
  9. RANITIDINE [Concomitant]
  10. CETAPHIL (PROPYLENE GLYCOL, STEARYL ALCOHOL, CETYL ALCOHOL) [Concomitant]

REACTIONS (1)
  - LEFT VENTRICULAR DYSFUNCTION [None]
